FAERS Safety Report 8824380 (Version 1)
Quarter: 2012Q4

REPORT INFORMATION
  Report Type: 
  Country: US (occurrence: US)
  Receive Date: 20121004
  Receipt Date: 20121004
  Transmission Date: 20130627
  Serious: Yes (Hospitalization)
  Sender: FDA-Public Use
  Company Number: US-BAYER-2012-102545

PATIENT
  Age: 27 Year
  Sex: Female
  Weight: 62 kg

DRUGS (12)
  1. GIANVI [Suspect]
  2. ALPRAZOLAM [Concomitant]
     Dosage: 0.5 mg, TID
     Dates: start: 20110301, end: 20120331
  3. XANAX [Concomitant]
     Indication: DEPRESSION
     Dosage: 0.5 t.i.d. (three times daily)
     Route: 048
  4. XANAX [Concomitant]
     Indication: ANXIETY
  5. ZOLPIDEM TARTRATE [Concomitant]
     Dosage: 10 mg, daily
     Dates: start: 20110301, end: 20120331
  6. SERTRALINE HYDROCHLORIDE [Concomitant]
     Dosage: 200 mg, daily
     Dates: start: 20110303, end: 20120331
  7. AMBIEN [Concomitant]
     Dosage: 10 mg, daily
     Dates: start: 20110301, end: 20120331
  8. PROTONIX [Concomitant]
     Dosage: 40 p.o. daily
     Route: 048
  9. ZOLOFT [Concomitant]
     Indication: DEPRESSION
  10. ZOLOFT [Concomitant]
     Indication: ANXIETY
  11. VICODIN [Concomitant]
  12. PRILOSEC [Concomitant]

REACTIONS (1)
  - Pulmonary embolism [None]
